FAERS Safety Report 5975248-5 (Version None)
Quarter: 2008Q4

REPORT INFORMATION
  Report Type: 
  Country: None (occurrence: None)
  Receive Date: 20081128
  Receipt Date: 20081125
  Transmission Date: 20090506
  Serious: Yes (Hospitalization)
  Sender: FDA-Public Use
  Company Number: DL2008522

PATIENT
  Age: 26 Year
  Sex: Female

DRUGS (5)
  1. MIFEPRISTONE TABLETS, 200 MG (DANCO LABS) [Suspect]
     Indication: ABORTION INDUCED
     Dosage: 200 MG, ORAL
     Route: 048
     Dates: start: 20081002
  2. MISOPROSTOL [Suspect]
     Dosage: 800 MCG, BUCCAL 400 MCG BUCCAL
     Route: 002
     Dates: start: 20081003
  3. MISOPROSTOL [Suspect]
     Dosage: 800 MCG, BUCCAL 400 MCG BUCCAL
     Route: 002
     Dates: start: 20081004
  4. MISOPROSTOL [Suspect]
     Dosage: 800 MCG, BUCCAL 400 MCG BUCCAL
     Route: 002
     Dates: start: 20081013
  5. DOXYCYCLINE [Concomitant]

REACTIONS (1)
  - HAEMORRHAGE [None]
